FAERS Safety Report 5848609-2 (Version None)
Quarter: 2008Q3

REPORT INFORMATION
  Report Type: 
  Country: None (occurrence: None)
  Receive Date: 20080818
  Receipt Date: 20070805
  Transmission Date: 20090109
  Serious: No
  Sender: FDA-Public Use
  Company Number: US-BRISTOL-MYERS SQUIBB COMPANY-13869284

PATIENT
  Sex: Male

DRUGS (3)
  1. ZERIT [Suspect]
  2. EPIVIR [Suspect]
  3. VIRACEPT [Suspect]

REACTIONS (1)
  - LIPODYSTROPHY ACQUIRED [None]
